FAERS Safety Report 4476936-2 (Version None)
Quarter: 2004Q4

REPORT INFORMATION
  Report Type: 
  Country: None (occurrence: None)
  Receive Date: 20041012
  Receipt Date: 20010322
  Transmission Date: 20050328
  Serious: Yes (Hospitalization, Other)
  Sender: FDA-Public Use
  Company Number: KII-2001-0002436

PATIENT

DRUGS (2)
  1. OXYCONTIN [Suspect]
  2. ALCOHOL (ETHANOL) [Suspect]

REACTIONS (2)
  - COMA [None]
  - POLYSUBSTANCE ABUSE [None]
